FAERS Safety Report 21077612 (Version 1)
Quarter: 2022Q3

REPORT INFORMATION
  Report Type: Spontaneous
  Country: US (occurrence: None)
  Receive Date: 20220713
  Receipt Date: 20220713
  Transmission Date: 20221027
  Serious: Yes (Disabling)
  Sender: FDA-Public Use
  Company Number: None

PATIENT
  Age: 90 Year
  Sex: Female
  Weight: 78.47 kg

DRUGS (12)
  1. TRULICITY [Suspect]
     Active Substance: DULAGLUTIDE
     Indication: Diabetes mellitus
     Dates: start: 20220204
  2. ATORVASTATIN [Concomitant]
  3. COLCHICINE [Concomitant]
     Active Substance: COLCHICINE
  4. METROPROLOL ER [Concomitant]
  5. CLOPIDOGREL [Concomitant]
     Active Substance: CLOPIDOGREL BISULFATE
  6. LISINOPRIL [Concomitant]
     Active Substance: LISINOPRIL
  7. CALCIUM CITRATE\CHOLECALCIFEROL [Concomitant]
     Active Substance: CALCIUM CITRATE\CHOLECALCIFEROL
  8. LUTEIN [Concomitant]
     Active Substance: LUTEIN
  9. FISH OIL [Concomitant]
     Active Substance: FISH OIL
  10. WOMENS ONE-A-DAY [Concomitant]
  11. VITAMIN B12 [Concomitant]
     Active Substance: CYANOCOBALAMIN
  12. MINERALS\VITAMINS [Concomitant]
     Active Substance: MINERALS\VITAMINS

REACTIONS (4)
  - Abdominal pain [None]
  - Vision blurred [None]
  - Lacrimation increased [None]
  - Impaired gastric emptying [None]

NARRATIVE: CASE EVENT DATE: 20220410
